FAERS Safety Report 15603426 (Version 1)
Quarter: 2018Q4

REPORT INFORMATION
  Report Type: Spontaneous
  Country: US (occurrence: US)
  Receive Date: 20181109
  Receipt Date: 20181109
  Transmission Date: 20190205
  Serious: No
  Sender: FDA-Public Use
  Company Number: US-ASTRAZENECA-2018SF44196

PATIENT
  Age: 23014 Day
  Sex: Male
  Weight: 86.2 kg

DRUGS (6)
  1. BRILINTA [Suspect]
     Active Substance: TICAGRELOR
     Indication: STENT PLACEMENT
     Route: 048
     Dates: start: 20181030
  2. FUROSEMIDE. [Concomitant]
     Active Substance: FUROSEMIDE
     Indication: CORONARY ARTERY BYPASS
     Route: 048
     Dates: start: 2013
  3. LIPITOR [Concomitant]
     Active Substance: ATORVASTATIN CALCIUM
     Indication: BLOOD CHOLESTEROL INCREASED
     Route: 048
     Dates: start: 2013
  4. LISINOPRIL. [Suspect]
     Active Substance: LISINOPRIL
     Indication: CORONARY ARTERY BYPASS
     Route: 048
     Dates: start: 2013
  5. METOPROLOL TARTRATE. [Suspect]
     Active Substance: METOPROLOL TARTRATE
     Indication: CORONARY ARTERY BYPASS
     Route: 048
     Dates: start: 2013
  6. POTASSIUM [Concomitant]
     Active Substance: POTASSIUM
     Indication: CORONARY ARTERY BYPASS
     Route: 065

REACTIONS (1)
  - Orthopnoea [Not Recovered/Not Resolved]

NARRATIVE: CASE EVENT DATE: 20181030
